FAERS Safety Report 4350006-6 (Version None)
Quarter: 2004Q2

REPORT INFORMATION
  Report Type: 
  Country: None (occurrence: None)
  Receive Date: 20040428
  Receipt Date: 20040428
  Transmission Date: 20050107
  Serious: No
  Sender: FDA-Public Use
  Company Number: None

PATIENT
  Sex: Female
  Weight: 83.9154 kg

DRUGS (1)
  1. TRINESSA [Suspect]
     Dosage: 1 X PER 21 DAYS ORAL
     Route: 048
     Dates: start: 20040220, end: 20040420

REACTIONS (6)
  - ACNE [None]
  - BREAST TENDERNESS [None]
  - DYSMENORRHOEA [None]
  - MENORRHAGIA [None]
  - METRORRHAGIA [None]
  - PHARMACEUTICAL PRODUCT COMPLAINT [None]
